FAERS Safety Report 14949288 (Version 1)
Quarter: 2018Q2

REPORT INFORMATION
  Report Type: Spontaneous
  Country: US (occurrence: US)
  Receive Date: 20180508
  Receipt Date: 20180508
  Transmission Date: 20180711
  Serious: No
  Sender: FDA-Public Use
  Company Number: None

PATIENT
  Age: 64 Year
  Sex: Female
  Weight: 76.5 kg

DRUGS (2)
  1. MYCOPHENOLATAE MOFETIL [Concomitant]
  2. CELLCEPT [Suspect]
     Active Substance: MYCOPHENOLATE MOFETIL\MYCOPHENOLATE MOFETIL HYDROCHLORIDE
     Indication: AUTOIMMUNE HEPATITIS
     Dosage: ?          QUANTITY:3 CAPSULE(S);??
     Route: 048
     Dates: start: 20170501

REACTIONS (10)
  - Insomnia [None]
  - Deafness unilateral [None]
  - Influenza [None]
  - Dysgraphia [None]
  - Speech disorder [None]
  - Tongue movement disturbance [None]
  - Balance disorder [None]
  - Gait disturbance [None]
  - Asthenia [None]
  - Bradyphrenia [None]

NARRATIVE: CASE EVENT DATE: 20180404
